FAERS Safety Report 18600499 (Version 1)
Quarter: 2020Q4

REPORT INFORMATION
  Report Type: Spontaneous
  Country: None (occurrence: PT)
  Receive Date: 20201210
  Receipt Date: 20201210
  Transmission Date: 20210114
  Serious: Yes (Hospitalization, Other)
  Sender: FDA-Public Use
  Company Number: PT-SA-2016SA125137

PATIENT

DRUGS (5)
  1. TAMSULOSIN HYDROCHLORIDE. [Suspect]
     Active Substance: TAMSULOSIN HYDROCHLORIDE
     Indication: PRODUCT USED FOR UNKNOWN INDICATION
     Dosage: UNK UNK,UNK
     Route: 065
  2. SPIRONOLACTONE. [Suspect]
     Active Substance: SPIRONOLACTONE
     Indication: PRODUCT USED FOR UNKNOWN INDICATION
     Dosage: UNK UNK,UNK
     Route: 065
  3. AMIODARONE HYDROCHLORIDE. [Suspect]
     Active Substance: AMIODARONE HYDROCHLORIDE
     Indication: PRODUCT USED FOR UNKNOWN INDICATION
     Dosage: UNK UNK,UNK
     Route: 065
  4. FUROSEMIDE. [Suspect]
     Active Substance: FUROSEMIDE
     Indication: PRODUCT USED FOR UNKNOWN INDICATION
     Dosage: UNK UNK,UNK
     Route: 065
  5. ENALAPRIL MALEATE. [Suspect]
     Active Substance: ENALAPRIL MALEATE
     Indication: PRODUCT USED FOR UNKNOWN INDICATION
     Dosage: UNK UNK,UNK
     Route: 065

REACTIONS (17)
  - Condition aggravated [Recovering/Resolving]
  - Renal injury [Unknown]
  - Gait disturbance [Recovering/Resolving]
  - Acute kidney injury [Unknown]
  - Hypoaesthesia [Recovering/Resolving]
  - Toxicity to various agents [Unknown]
  - Arrhythmia [Unknown]
  - Muscular weakness [Recovering/Resolving]
  - Mediastinal disorder [Recovering/Resolving]
  - Asthenia [Unknown]
  - Fall [Recovering/Resolving]
  - Demyelinating polyneuropathy [Recovering/Resolving]
  - Hyperthyroidism [Unknown]
  - Goitre [Unknown]
  - Peripheral sensorimotor neuropathy [Unknown]
  - Resting tremor [Recovering/Resolving]
  - Motor dysfunction [Recovering/Resolving]
